FAERS Safety Report 8846261 (Version 1)
Quarter: 2012Q4

REPORT INFORMATION
  Report Type: 
  Country: SE (occurrence: SE)
  Receive Date: 20121017
  Receipt Date: 20121028
  Transmission Date: 20130627
  Serious: Yes (Hospitalization)
  Sender: FDA-Public Use
  Company Number: SE-MYLANLABS-2012S1020783

PATIENT
  Age: 55 Year
  Sex: Female

DRUGS (2)
  1. DICLOFENAC [Suspect]
     Indication: ABDOMINAL PAIN UPPER
     Dates: end: 20120618
  2. SPASMOFEN /00511201/ [Suspect]
     Indication: PRODUCT USED FOR UNKNOWN INDICATION

REACTIONS (3)
  - Transaminases increased [Unknown]
  - Hyperbilirubinaemia [Unknown]
  - Drug ineffective [Unknown]
